FAERS Safety Report 5424102-6 (Version None)
Quarter: 2007Q3

REPORT INFORMATION
  Report Type: 
  Country: None (occurrence: None)
  Receive Date: 20070731
  Receipt Date: 20070604
  Transmission Date: 20080115
  Serious: No
  Sender: FDA-Public Use
  Company Number: US200705007459

PATIENT
  Age: 54 Year
  Sex: Female

DRUGS (3)
  1. BYETTA [Suspect]
     Dosage: 10 UG, 2/D, ORAL   20 UG, OTHER, SUBCUTANEOUS
     Route: 048
     Dates: start: 20070529, end: 20070529
  2. BYETTA [Suspect]
     Dosage: 10 UG, 2/D, ORAL   20 UG, OTHER, SUBCUTANEOUS
     Route: 048
     Dates: start: 20060101
  3. METFORMIN HCL [Concomitant]

REACTIONS (3)
  - ACCIDENTAL OVERDOSE [None]
  - INCORRECT DOSE ADMINISTERED [None]
  - NAUSEA [None]
